FAERS Safety Report 5373475-1 (Version None)
Quarter: 2007Q2

REPORT INFORMATION
  Report Type: 
  Country: None (occurrence: None)
  Receive Date: 20070626
  Receipt Date: 20070626
  Transmission Date: 20071010
  Serious: No
  Sender: FDA-Public Use
  Company Number: None

PATIENT
  Age: 34 Year
  Sex: Female
  Weight: 64.4108 kg

DRUGS (1)
  1. TUBERSOL [Suspect]
     Dosage: 5TU  ID
     Dates: start: 20070620, end: 20070625

REACTIONS (3)
  - ARTHRALGIA [None]
  - COUGH [None]
  - PYREXIA [None]
